FAERS Safety Report 10405169 (Version 1)
Quarter: 2014Q3

REPORT INFORMATION
  Report Type: Report from Study
  Country: KR (occurrence: KR)
  Receive Date: 20140825
  Receipt Date: 20140825
  Transmission Date: 20150326
  Serious: Yes (Hospitalization)
  Sender: FDA-Public Use
  Company Number: KR-ROCHE-1452876

PATIENT
  Age: 50 Year
  Sex: Male
  Weight: 64.4 kg

DRUGS (10)
  1. PENNEL (SOUTH KOREA) [Concomitant]
     Route: 065
     Dates: start: 20110523
  2. CAPECITABINE [Suspect]
     Active Substance: CAPECITABINE
     Indication: BILE DUCT CANCER
     Dosage: DATE OF LAST DOSE PRIOR TO SAE: 13/AUG/2014
     Route: 048
     Dates: start: 20140730
  3. NORVASC [Concomitant]
     Active Substance: AMLODIPINE BESYLATE
     Route: 065
     Dates: start: 20130313
  4. MOTILITONE [Concomitant]
     Active Substance: HERBALS
     Route: 065
     Dates: start: 20130510
  5. VITAMIN C [Concomitant]
     Active Substance: ASCORBIC ACID
     Route: 065
     Dates: start: 20130315
  6. OXALIPLATIN. [Suspect]
     Active Substance: OXALIPLATIN
     Indication: BILE DUCT CANCER
     Dosage: DATE OF LAST DOSE PRIOR TO SAE: 30/JUL/2014
     Route: 042
     Dates: start: 20140730
  7. AMARYL M [Concomitant]
     Active Substance: GLIMEPIRIDE\METFORMIN
     Dosage: 2/500 MG, 2TAB
     Route: 065
     Dates: start: 20121120
  8. COZAAR [Concomitant]
     Active Substance: LOSARTAN POTASSIUM
     Route: 065
     Dates: start: 20110403
  9. TRADJENTA [Concomitant]
     Active Substance: LINAGLIPTIN
     Route: 065
     Dates: start: 20130316
  10. TRADJENTA [Concomitant]
     Active Substance: LINAGLIPTIN
     Route: 065
     Dates: start: 20130316

REACTIONS (4)
  - Feeling cold [Not Recovered/Not Resolved]
  - Abdominal pain upper [Not Recovered/Not Resolved]
  - Myalgia [Not Recovered/Not Resolved]
  - Hiccups [Not Recovered/Not Resolved]

NARRATIVE: CASE EVENT DATE: 20140815
